FAERS Safety Report 9237913 (Version 1)
Quarter: 2013Q2

REPORT INFORMATION
  Report Type: Spontaneous
  Country: None (occurrence: None)
  Receive Date: 20130415
  Receipt Date: 20130415
  Transmission Date: 20140414
  Serious: Yes (Other)
  Sender: FDA-Public Use
  Company Number: GER/UKI/13/0029002

PATIENT
  Age: 62 None
  Sex: Male

DRUGS (2)
  1. ATORVASTATIN(ATORVASTATIN CALCIUM) [Suspect]
     Indication: BLOOD CHOLESTEROL INCREASED
     Route: 048
     Dates: start: 20120601, end: 20120901
  2. RAMIPRIL(RAMIPRIL) [Concomitant]

REACTIONS (2)
  - Fatigue [None]
  - Depression suicidal [None]
